FAERS Safety Report 7007663-5 (Version None)
Quarter: 2010Q3

REPORT INFORMATION
  Report Type: 
  Country: None (occurrence: None)
  Receive Date: 20100922
  Receipt Date: 20100913
  Transmission Date: 20110219
  Serious: Yes (Other)
  Sender: FDA-Public Use
  Company Number: BR-PFIZER INC-2009199029

PATIENT
  Age: 23 Year
  Sex: Female
  Weight: 51 kg

DRUGS (1)
  1. DEPO-PROVERA [Suspect]
     Indication: CONTRACEPTION
     Dosage: 150 MG, EVERY 3 MONTHS
     Route: 030
     Dates: start: 20070101

REACTIONS (6)
  - AMENORRHOEA [None]
  - BLOOD PRESSURE INCREASED [None]
  - HEADACHE [None]
  - MENSTRUATION IRREGULAR [None]
  - METRORRHAGIA [None]
  - PELVIC PAIN [None]
